FAERS Safety Report 4787347-4 (Version None)
Quarter: 2005Q4

REPORT INFORMATION
  Report Type: 
  Country: None (occurrence: None)
  Receive Date: 20051003
  Receipt Date: 20050927
  Transmission Date: 20060501
  Serious: Yes (Death)
  Sender: FDA-Public Use
  Company Number: 163-20785-05070182

PATIENT
  Age: 50 Year
  Sex: Male

DRUGS (1)
  1. THALOMID [Suspect]
     Indication: AMYLOIDOSIS
     Dosage: 200 MG, QD, ORAL
     Route: 048
     Dates: start: 20050608, end: 20050101

REACTIONS (3)
  - AMYLOIDOSIS [None]
  - ANGIOPATHY [None]
  - DISEASE PROGRESSION [None]
